FAERS Safety Report 9621268 (Version 1)
Quarter: 2013Q4

REPORT INFORMATION
  Report Type: Spontaneous
  Country: US (occurrence: None)
  Receive Date: 20131011
  Receipt Date: 20131011
  Transmission Date: 20140711
  Serious: No
  Sender: FDA-Public Use
  Company Number: None

PATIENT
  Age: 58 Year
  Sex: Female
  Weight: 77.11 kg

DRUGS (4)
  1. ACTONEL [Suspect]
     Indication: BONE DENSITY DECREASED
     Route: 048
     Dates: start: 200609, end: 200702
  2. ACTONEL [Suspect]
     Route: 048
     Dates: start: 200609, end: 200702
  3. ALCOHOL [Concomitant]
  4. CITRACEL W/D3 [Concomitant]

REACTIONS (1)
  - Eructation [None]
